FAERS Safety Report 9786115 (Version 4)
Quarter: 2014Q4

REPORT INFORMATION
  Report Type: Spontaneous
  Country: MX (occurrence: MX)
  Receive Date: 20131227
  Receipt Date: 20141028
  Transmission Date: 20150529
  Serious: No
  Sender: FDA-Public Use
  Company Number: MX-US-EMD SERONO, INC.-7259475

PATIENT
  Sex: Female
  Weight: 60 kg

DRUGS (1)
  1. SAIZEN [Suspect]
     Active Substance: SOMATROPIN
     Indication: SPINAL DISORDER
     Route: 058
     Dates: start: 20130815, end: 201312

REACTIONS (2)
  - Blood creatinine increased [Recovered/Resolved]
  - Off label use [Unknown]

NARRATIVE: CASE EVENT DATE: 2013
